FAERS Safety Report 22246170 (Version 2)
Quarter: 2023Q2

REPORT INFORMATION
  Report Type: Report from Study
  Country: RO (occurrence: RO)
  Receive Date: 20230424
  Receipt Date: 20230503
  Transmission Date: 20230722
  Serious: Yes (Hospitalization)
  Sender: FDA-Public Use
  Company Number: RO-002147023-NVSC2023RO083563

PATIENT

DRUGS (7)
  1. RUXOLITINIB [Suspect]
     Active Substance: RUXOLITINIB
     Indication: Blood disorder
     Dosage: 15 MG
     Route: 065
     Dates: start: 2021
  2. RUXOLITINIB [Suspect]
     Active Substance: RUXOLITINIB
     Dosage: 20 MG, (2 PILLS/DAY (56/MONTH)
     Route: 048
     Dates: start: 2021, end: 202205
  3. RUXOLITINIB [Suspect]
     Active Substance: RUXOLITINIB
     Dosage: 10 MG (2 PILLS/DAY (56/MONTH)
     Route: 048
     Dates: start: 202205
  4. ASPIRIN [Concomitant]
     Active Substance: ASPIRIN
     Indication: Blood disorder
     Dosage: UNK, BID
     Route: 065
  5. INDAPAMIDE [Concomitant]
     Active Substance: INDAPAMIDE
     Indication: Blood pressure abnormal
     Dosage: UNK, BID
     Route: 065
  6. GABAPENTIN [Concomitant]
     Active Substance: GABAPENTIN
     Indication: Rheumatic disorder
     Dosage: UNK, BID
     Route: 065
  7. DIOSMIN\HESPERIDIN [Concomitant]
     Active Substance: DIOSMIN\HESPERIDIN
     Indication: Varicose vein
     Dosage: 1000 MG, QD
     Route: 065

REACTIONS (3)
  - Red blood cell count increased [Unknown]
  - Epistaxis [Recovered/Resolved]
  - Product use in unapproved indication [Not Recovered/Not Resolved]

NARRATIVE: CASE EVENT DATE: 20210101
